FAERS Safety Report 8588913-0 (Version None)
Quarter: 2012Q3

REPORT INFORMATION
  Report Type: 
  Country: None (occurrence: None)
  Receive Date: 20120813
  Receipt Date: 20120803
  Transmission Date: 20120928
  Serious: Yes (Hospitalization)
  Sender: FDA-Public Use
  Company Number: FR-BRISTOL-MYERS SQUIBB COMPANY-16846891

PATIENT
  Age: 57 Year
  Sex: Male

DRUGS (3)
  1. ERBITUX [Suspect]
     Indication: PHARYNGEAL NEOPLASM
     Dosage: DOSE:792 MG,09JUL2012,28JUN2012-STOPPED.
     Route: 042
     Dates: start: 20120709
  2. FLUOROURACIL [Suspect]
     Indication: PHARYNGEAL NEOPLASM
     Dosage: FLUOROURACIL SOLN FOR INJECTION. ROUTE:AUTOFUSEUR.
     Dates: start: 20120709, end: 20120714
  3. CISPLATIN [Concomitant]
     Indication: PHARYNGEAL NEOPLASM
     Route: 042
     Dates: start: 20120709

REACTIONS (1)
  - ACUTE CORONARY SYNDROME [None]
